FAERS Safety Report 10796258 (Version 1)
Quarter: 2015Q1

REPORT INFORMATION
  Report Type: Spontaneous
  Country: IT (occurrence: IT)
  Receive Date: 20150216
  Receipt Date: 20150216
  Transmission Date: 20150721
  Serious: Yes (Other)
  Sender: FDA-Public Use
  Company Number: IT-RANBAXY-2014RR-90074

PATIENT
  Age: 83 Year
  Sex: Female

DRUGS (4)
  1. LORMETAZEPAM [Suspect]
     Active Substance: LORMETAZEPAM
     Indication: DEPRESSION
     Dosage: 20 ML TOTAL
     Route: 048
     Dates: start: 20141028, end: 20141104
  2. XANAX [Suspect]
     Active Substance: ALPRAZOLAM
     Indication: DEPRESSION
     Dosage: 20 DF TOTAL
     Route: 048
     Dates: start: 20141028, end: 20141104
  3. MINIAS [Suspect]
     Active Substance: LORMETAZEPAM
     Indication: DEPRESSION
     Dosage: 1 MG TOTAL
     Route: 048
     Dates: start: 20141028, end: 20141104
  4. LORAZEPAM. [Suspect]
     Active Substance: LORAZEPAM
     Indication: DEPRESSION
     Dosage: 2500 MICROGRAMS TOTAL
     Route: 048
     Dates: start: 20141028, end: 20141104

REACTIONS (5)
  - Speech disorder [Recovered/Resolved]
  - Drug abuse [Recovered/Resolved]
  - Headache [Recovered/Resolved]
  - Fall [Recovered/Resolved]
  - Sopor [Recovered/Resolved]

NARRATIVE: CASE EVENT DATE: 20141104
